FAERS Safety Report 5193634-0 (Version None)
Quarter: 2006Q4

REPORT INFORMATION
  Report Type: 
  Country: None (occurrence: None)
  Receive Date: 20061221
  Receipt Date: 20061207
  Transmission Date: 20070319
  Serious: Yes (Life-Threatening, Hospitalization, Other)
  Sender: FDA-Public Use
  Company Number: S06-AUS-01971-02

PATIENT
  Sex: 0

DRUGS (1)
  1. CERVIDIL [Suspect]
     Indication: LABOUR INDUCTION
     Dosage: 10 MG ONCE TRANSPLACENTAL
     Route: 064
     Dates: start: 20060427, end: 20060427

REACTIONS (12)
  - APGAR SCORE LOW [None]
  - BLOOD BICARBONATE INCREASED [None]
  - BLOOD GASES ABNORMAL [None]
  - BLOOD PH DECREASED [None]
  - COMPLICATION OF DEVICE REMOVAL [None]
  - DRUG EXPOSURE DURING PREGNANCY [None]
  - FOETAL HEART RATE DECELERATION [None]
  - HYPOTONIA [None]
  - MECONIUM STAIN [None]
  - PALLOR [None]
  - SEPSIS NEONATAL [None]
  - UMBILICAL CORD AROUND NECK [None]
